FAERS Safety Report 5663915-2 (Version None)
Quarter: 2008Q1

REPORT INFORMATION
  Report Type: 
  Country: None (occurrence: None)
  Receive Date: 20080311
  Receipt Date: 20080227
  Transmission Date: 20080703
  Serious: Yes (Other)
  Sender: FDA-Public Use
  Company Number: GXKR2008GB02094

PATIENT
  Age: 10 Year
  Sex: Female
  Weight: 33.8 kg

DRUGS (1)
  1. CLONIDINE [Suspect]
     Indication: TOURETTE'S DISORDER
     Dosage: 50 UG, TID, ORAL
     Route: 048
     Dates: start: 20060301

REACTIONS (2)
  - ONYCHOMADESIS [None]
  - TOOTH FRACTURE [None]
